FAERS Safety Report 9614771 (Version 1)
Quarter: 2013Q4

REPORT INFORMATION
  Report Type: Spontaneous
  Country: US (occurrence: None)
  Receive Date: 20131009
  Receipt Date: 20131009
  Transmission Date: 20140711
  Serious: Yes (Other)
  Sender: FDA-Public Use
  Company Number: None

PATIENT
  Age: 35 Year
  Sex: Male
  Weight: 83.92 kg

DRUGS (2)
  1. EFFEXOR XR [Suspect]
     Indication: DEPRESSION
     Dosage: 1 PILL ONCE DAILY TAKEN BY MOUTH
     Route: 048
     Dates: start: 20120801, end: 20131004
  2. EFFEXOR XR [Suspect]
     Indication: ANXIETY
     Dosage: 1 PILL ONCE DAILY TAKEN BY MOUTH
     Route: 048
     Dates: start: 20120801, end: 20131004

REACTIONS (18)
  - Paraesthesia [None]
  - Thinking abnormal [None]
  - Visual impairment [None]
  - Speech disorder [None]
  - Hearing impaired [None]
  - Impaired driving ability [None]
  - Nausea [None]
  - Abdominal pain upper [None]
  - Chills [None]
  - Hyperhidrosis [None]
  - Dizziness [None]
  - Tremor [None]
  - Agitation [None]
  - Anger [None]
  - Confusional state [None]
  - Disturbance in attention [None]
  - Crying [None]
  - Therapy cessation [None]
